FAERS Safety Report 10005592 (Version 1)
Quarter: 2014Q1

REPORT INFORMATION
  Report Type: Spontaneous
  Country: US (occurrence: US)
  Receive Date: 20140313
  Receipt Date: 20140313
  Transmission Date: 20141002
  Serious: No
  Sender: FDA-Public Use
  Company Number: US-BIOGENIDEC-2014BI020299

PATIENT
  Age: 66 Year
  Sex: Female

DRUGS (11)
  1. TECFIDERA [Suspect]
     Indication: MULTIPLE SCLEROSIS
     Route: 048
     Dates: start: 20140221, end: 20140227
  2. CARDURA [Concomitant]
  3. CHLORTHALIDONE [Concomitant]
  4. COZAAR [Concomitant]
  5. LUMIGAN [Concomitant]
  6. METFORMIN HCL [Concomitant]
  7. METOPROLOL TARTRATE [Concomitant]
  8. SINGULAIR [Concomitant]
  9. SYNTHROID [Concomitant]
  10. TIZANIDINE [Concomitant]
  11. VITAMIN B12 [Concomitant]

REACTIONS (6)
  - Gastrooesophageal reflux disease [Unknown]
  - Headache [Unknown]
  - Fatigue [Unknown]
  - Sinusitis [Unknown]
  - Urinary tract infection [Unknown]
  - Wound [Unknown]
